FAERS Safety Report 17152218 (Version 1)
Quarter: 2019Q4

REPORT INFORMATION
  Report Type: Spontaneous
  Country: US (occurrence: US)
  Receive Date: 20191121
  Receipt Date: 20191121
  Transmission Date: 20200122
  Serious: No
  Sender: FDA-Public Use
  Company Number: None

PATIENT
  Age: 65 Year
  Sex: Male

DRUGS (1)
  1. IBRANCE [Suspect]
     Active Substance: PALBOCICLIB
     Dosage: ?          OTHER DOSE:1 TABLET;?
     Route: 048
     Dates: start: 2017

REACTIONS (4)
  - Wound [None]
  - Cataract operation [None]
  - Lymphoedema [None]
  - Skin ulcer [None]

NARRATIVE: CASE EVENT DATE: 20191121
